FAERS Safety Report 6119351-8 (Version None)
Quarter: 2009Q1

REPORT INFORMATION
  Report Type: 
  Country: None (occurrence: None)
  Receive Date: 20090311
  Receipt Date: 20090303
  Transmission Date: 20090719
  Serious: Yes (Hospitalization)
  Sender: FDA-Public Use
  Company Number: GXKR2009DE02766

PATIENT
  Age: 81 Year
  Sex: Female
  Weight: 66.4 kg

DRUGS (1)
  1. DOXYCYCLINE [Suspect]
     Indication: BORRELIA INFECTION
     Dosage: 100 MG, QD, ORAL
     Route: 048
     Dates: start: 20081110, end: 20081128

REACTIONS (1)
  - SYNCOPE [None]
